FAERS Safety Report 12338001 (Version 1)
Quarter: 2016Q2

REPORT INFORMATION
  Report Type: Report from Study
  Country: US (occurrence: US)
  Receive Date: 20160505
  Receipt Date: 20160505
  Transmission Date: 20160815
  Serious: Yes (Death, Hospitalization, Other)
  Sender: FDA-Public Use
  Company Number: US-BRISTOL-MYERS SQUIBB COMPANY-BMS-2016-034655

PATIENT
  Age: 78 Year
  Sex: Male
  Weight: 73.3 kg

DRUGS (4)
  1. DEXAMETHASONE. [Suspect]
     Active Substance: DEXAMETHASONE
     Indication: PLASMA CELL MYELOMA
     Dosage: 40 MG, UNK
     Route: 065
     Dates: start: 20160428, end: 20160429
  2. LENALIDOMIDE [Suspect]
     Active Substance: LENALIDOMIDE
     Indication: PLASMA CELL MYELOMA
     Dosage: 25 MG, UNK
     Route: 065
     Dates: start: 20160428, end: 20160428
  3. ELOTUZUMAB. [Suspect]
     Active Substance: ELOTUZUMAB
     Indication: PLASMA CELL MYELOMA
     Dosage: 761 MG, UNK
     Route: 065
     Dates: start: 20160428, end: 20160428
  4. BORTEZOMIB [Suspect]
     Active Substance: BORTEZOMIB
     Indication: PLASMA CELL MYELOMA
     Dosage: 2.525 MG, UNK
     Route: 065
     Dates: start: 20160428, end: 20160428

REACTIONS (8)
  - Hypoalbuminaemia [Unknown]
  - Blood bilirubin increased [Unknown]
  - Multiple organ dysfunction syndrome [Fatal]
  - Alanine aminotransferase increased [Unknown]
  - Hyperkalaemia [Unknown]
  - Aspartate aminotransferase increased [Unknown]
  - Anaemia [Unknown]
  - International normalised ratio increased [Unknown]

NARRATIVE: CASE EVENT DATE: 20160429
